FAERS Safety Report 4721366-9 (Version None)
Quarter: 2005Q3

REPORT INFORMATION
  Report Type: 
  Country: None (occurrence: None)
  Receive Date: 20050721
  Receipt Date: 20040721
  Transmission Date: 20060218
  Serious: No
  Sender: FDA-Public Use
  Company Number: US-BRISTOL-MYERS SQUIBB COMPANY-12647384

PATIENT
  Age: 84 Year
  Sex: Male
  Weight: 76 kg

DRUGS (4)
  1. COUMADIN [Suspect]
     Indication: HEART RATE IRREGULAR
     Dosage: TOOK 1 AND 1/2 TABLET (SAMPLE) OF THE 1MG TABLETS ON 16-JUL-04, THEN 1 MG DAILY
     Route: 048
     Dates: start: 20040716
  2. SYNTHROID [Concomitant]
  3. ASPIRIN [Concomitant]
  4. PRAVACHOL [Concomitant]

REACTIONS (1)
  - RASH [None]
